FAERS Safety Report 6329129-8 (Version None)
Quarter: 2009Q3

REPORT INFORMATION
  Report Type: 
  Country: None (occurrence: None)
  Receive Date: 20090826
  Receipt Date: 20090814
  Transmission Date: 20100115
  Serious: Yes (Hospitalization, Other)
  Sender: FDA-Public Use
  Company Number: US-ROCHE-650883

PATIENT
  Age: 40 Year
  Sex: Female

DRUGS (9)
  1. OSELTAMIVIR [Suspect]
     Route: 048
     Dates: start: 20090626, end: 20090701
  2. OSELTAMIVIR [Suspect]
     Dosage: DOSAGE INCREASED.
     Route: 048
     Dates: start: 20090703, end: 20090806
  3. RIBAVIRIN [Suspect]
     Dosage: AEROSOLIZED RIBAVIRIN.
     Route: 050
     Dates: start: 20090807, end: 20090813
  4. RIBAVIRIN [Suspect]
     Dosage: ORAL RIBAVIRIN.
     Route: 050
     Dates: start: 20090813
  5. RIMANTADINE HYDROCHLORIDE [Suspect]
     Route: 048
     Dates: start: 20090626, end: 20090701
  6. RIMANTADINE HYDROCHLORIDE [Suspect]
     Dosage: DOSAGE INCREASED.
     Route: 048
     Dates: start: 20090703, end: 20090806
  7. ZANAMIVIR [Suspect]
     Dosage: ROUTE: INHALATION, TREATMENT WAS ATTEMPTED BUT POORLY TOLERATED.
     Route: 050
  8. ZANAMIVIR [Suspect]
     Dosage: ROUTE: INHALATION, OSELTAMIVIR DISCONTINUED, ZANAMIVIR TREATMENT WAS ATTEMPTED BUT POORLY TOLERATED.
     Route: 050
  9. ZANAMIVIR [Suspect]
     Dosage: ROUTE: INTRAVENOUS, COMPASSIONATE USE
     Route: 050
     Dates: start: 20090807

REACTIONS (5)
  - FEBRILE NEUTROPENIA [None]
  - HYPOXIA [None]
  - PATHOGEN RESISTANCE [None]
  - PNEUMOCYSTIS JIROVECI PNEUMONIA [None]
  - STAPHYLOCOCCAL BACTERAEMIA [None]
